FAERS Safety Report 22128684 (Version 1)
Quarter: 2023Q1

REPORT INFORMATION
  Report Type: Other
  Country: GB (occurrence: GB)
  Receive Date: 20230323
  Receipt Date: 20230323
  Transmission Date: 20230418
  Serious: Yes (Other)
  Sender: FDA-Public Use
  Company Number: GB-SCD-010964-01

PATIENT

DRUGS (1)
  1. METFORMIN [Suspect]
     Active Substance: METFORMIN HYDROCHLORIDE
     Indication: Diabetes mellitus
     Dosage: 500 MILLIGRAM, BID
     Route: 048
     Dates: start: 202301

REACTIONS (9)
  - Eye disorder [Unknown]
  - Mental disorder [Unknown]
  - Memory impairment [Unknown]
  - Headache [Unknown]
  - Abdominal pain upper [Unknown]
  - Pruritus [Unknown]
  - Fatigue [Unknown]
  - Diabetes mellitus [Unknown]
  - Drug ineffective [Unknown]
